FAERS Safety Report 7733321-5 (Version None)
Quarter: 2011Q3

REPORT INFORMATION
  Report Type: 
  Country: None (occurrence: None)
  Receive Date: 20110907
  Receipt Date: 20110826
  Transmission Date: 20111222
  Serious: Yes (Hospitalization)
  Sender: FDA-Public Use
  Company Number: US-BAYER-2011-006781

PATIENT
  Age: 40 Year
  Sex: Female
  Weight: 117.91 kg

DRUGS (5)
  1. YASMIN [Suspect]
     Indication: PRODUCT USED FOR UNKNOWN INDICATION
     Dosage: UNK
     Dates: start: 20010906, end: 20030723
  2. YASMIN [Suspect]
     Dosage: UNK
     Dates: start: 19950101, end: 20040101
  3. VANIQA [Concomitant]
  4. BENAZEPRIL W/HYDROCHLOROTHIAZIDE [Concomitant]
     Route: 048
  5. CLAVULANATE POTASSIUM [Concomitant]
     Dosage: 10 MEQ, UNK
     Route: 048

REACTIONS (4)
  - PULMONARY EMBOLISM [None]
  - EMOTIONAL DISTRESS [None]
  - PAIN [None]
  - ANXIETY [None]
